FAERS Safety Report 17695656 (Version 1)
Quarter: 2020Q2

REPORT INFORMATION
  Report Type: Spontaneous
  Country: US (occurrence: US)
  Receive Date: 20200423
  Receipt Date: 20200423
  Transmission Date: 20200714
  Serious: No
  Sender: FDA-Public Use
  Company Number: US-PURDUE-USA-2020-0149697

PATIENT
  Sex: Female

DRUGS (1)
  1. OXYCODONE HYDROCHLORIDE (SIMILAR TO NDA 22-272) [Suspect]
     Active Substance: OXYCODONE HYDROCHLORIDE
     Indication: NEOPLASM MALIGNANT
     Dosage: 30 MG, UNK
     Route: 048

REACTIONS (4)
  - Product size issue [Unknown]
  - Product formulation issue [Unknown]
  - Pain [Unknown]
  - Mobility decreased [Unknown]
